FAERS Safety Report 5069126-6 (Version None)
Quarter: 2006Q3

REPORT INFORMATION
  Report Type: 
  Country: None (occurrence: None)
  Receive Date: 20060731
  Receipt Date: 20060718
  Transmission Date: 20061208
  Serious: Yes (Other)
  Sender: FDA-Public Use
  Company Number: 2006086295

PATIENT
  Sex: Female
  Weight: 97.5234 kg

DRUGS (6)
  1. CELEBREX [Suspect]
     Indication: ARTHRITIS
     Dosage: 400 MG (200 MG, 2 IN 1 D0
     Dates: start: 19990101
  2. PREDNISONE [Concomitant]
  3. MUSCLE RELAXANTS [Concomitant]
  4. DARVOCET [Concomitant]
  5. TRIAMTERENE [Concomitant]
  6. DRUG, UNSPECIFIED [Concomitant]

REACTIONS (15)
  - ANGINA PECTORIS [None]
  - ARTHRITIS [None]
  - BLOOD CHOLESTEROL INCREASED [None]
  - CARDIAC DISORDER [None]
  - CARDIAC STRESS TEST ABNORMAL [None]
  - CONDITION AGGRAVATED [None]
  - DIVERTICULITIS [None]
  - DYSPEPSIA [None]
  - DYSPNOEA EXERTIONAL [None]
  - ERYTHEMA [None]
  - GASTRIC DISORDER [None]
  - GASTROINTESTINAL ULCER [None]
  - HAEMATOCHEZIA [None]
  - ILL-DEFINED DISORDER [None]
  - OSTEOARTHRITIS [None]
